FAERS Safety Report 9484304 (Version 2)
Quarter: 2013Q3

REPORT INFORMATION
  Report Type: Spontaneous
  Country: CA (occurrence: CA)
  Receive Date: 20130828
  Receipt Date: 20130828
  Transmission Date: 20140515
  Serious: Yes (Hospitalization, Other)
  Sender: FDA-Public Use
  Company Number: CA-AMGEN-KDL290448

PATIENT
  Age: 52 Year
  Sex: Female
  Weight: 57 kg

DRUGS (4)
  1. ENBREL [Suspect]
     Indication: ANKYLOSING SPONDYLITIS
     Dosage: UNK UNK, QWK
     Route: 065
     Dates: start: 20080612
  2. CELECOXIB [Concomitant]
  3. ACETYLSALICYLIC ACID [Concomitant]
  4. METOPROLOL [Concomitant]

REACTIONS (19)
  - Nervous system disorder [Unknown]
  - Stomatitis [Unknown]
  - Throat lesion [Unknown]
  - Eating disorder [Unknown]
  - Contusion [Unknown]
  - Induration [Not Recovered/Not Resolved]
  - Injection site pain [Unknown]
  - Injection site vesicles [Unknown]
  - Hair texture abnormal [Unknown]
  - Nervousness [Unknown]
  - Anger [Unknown]
  - Fatigue [Unknown]
  - Alopecia [Unknown]
  - Oral candidiasis [Not Recovered/Not Resolved]
  - Weight increased [Unknown]
  - Injection site erythema [Unknown]
  - Injection site bruising [Unknown]
  - Injection site pruritus [Unknown]
  - Injection site pain [Unknown]
